FAERS Safety Report 8154998-9 (Version None)
Quarter: 2012Q1

REPORT INFORMATION
  Report Type: 
  Country: None (occurrence: None)
  Receive Date: 20120221
  Receipt Date: 20120217
  Transmission Date: 20120608
  Serious: Yes (Death)
  Sender: FDA-Public Use
  Company Number: PHHY2012NL005080

PATIENT
  Sex: Male
  Weight: 58 kg

DRUGS (5)
  1. DICLOFENAC [Concomitant]
     Dosage: 100 MG, UNK
  2. ZOMETA [Suspect]
     Dosage: 4 MG, ONCE PER 28 DAYS
     Dates: start: 20111205
  3. ZOMETA [Suspect]
     Indication: PROSTATE CANCER METASTATIC
     Dosage: 4 MG, ONCE PER 28 DAYS
     Dates: start: 20111101
  4. ZOMETA [Suspect]
     Dosage: 4 MG, ONCE PER 28 DAYS
     Dates: start: 20120109
  5. OXYCONTIN [Concomitant]
     Dosage: 10 MG, BID

REACTIONS (4)
  - BONE NEOPLASM MALIGNANT [None]
  - NEOPLASM PROGRESSION [None]
  - NEOPLASM MALIGNANT [None]
  - MALAISE [None]
